FAERS Safety Report 10543672 (Version 1)
Quarter: 2014Q4

REPORT INFORMATION
  Report Type: Spontaneous
  Country: US (occurrence: None)
  Receive Date: 20141014
  Receipt Date: 20141014
  Transmission Date: 20150529
  Serious: No
  Sender: FDA-Public Use
  Company Number: 2014PL000093

PATIENT
  Age: 63 Year
  Sex: Male
  Weight: 79.4 kg

DRUGS (4)
  1. SIMVASTATIN. [Concomitant]
     Active Substance: SIMVASTATIN
  2. ZYLOPRIM [Suspect]
     Active Substance: ALLOPURINOL
     Indication: GOUT
     Route: 048
     Dates: start: 201306
  3. FLOMAX /00889901/ (FORNIFLUMATE) [Concomitant]
  4. MORNIFLUMATE [Concomitant]
     Active Substance: MORNIFLUMATE

REACTIONS (1)
  - Drug ineffective [None]

NARRATIVE: CASE EVENT DATE: 2014
